FAERS Safety Report 24590723 (Version 1)
Quarter: 2024Q4

REPORT INFORMATION
  Report Type: Spontaneous
  Country: US (occurrence: US)
  Receive Date: 20241107
  Receipt Date: 20241107
  Transmission Date: 20250114
  Serious: No
  Sender: BRISTOL-MYERS SQUIBB COMPANY
  Company Number: US-BRISTOL-MYERS SQUIBB COMPANY-2024-173624

PATIENT
  Age: 89 Year
  Sex: Male
  Weight: 68.95 kg

DRUGS (1)
  1. REVLIMID [Suspect]
     Active Substance: LENALIDOMIDE
     Indication: Plasma cell myeloma
     Route: 048
     Dates: start: 202410

REACTIONS (5)
  - Lip swelling [Unknown]
  - Throat tightness [Unknown]
  - Dyspnoea [Unknown]
  - Rash [Unknown]
  - Teething [Unknown]

NARRATIVE: CASE EVENT DATE: 20241105
